FAERS Safety Report 15456841 (Version 1)
Quarter: 2018Q3

REPORT INFORMATION
  Report Type: Spontaneous
  Country: US (occurrence: US)
  Receive Date: 20180928
  Receipt Date: 20180928
  Transmission Date: 20181010
  Serious: No
  Sender: FDA-Public Use
  Company Number: None

PATIENT
  Age: 60 Year
  Sex: Male

DRUGS (1)
  1. BUDESONIDE 3MG CAPSULES DR [Suspect]
     Active Substance: BUDESONIDE
     Indication: COLITIS MICROSCOPIC
     Route: 048
     Dates: start: 20180520, end: 20180920

REACTIONS (2)
  - Product substitution issue [None]
  - Arthralgia [None]

NARRATIVE: CASE EVENT DATE: 20180928
